FAERS Safety Report 13854353 (Version 1)
Quarter: 2017Q3

REPORT INFORMATION
  Report Type: Spontaneous
  Country: US (occurrence: US)
  Receive Date: 20170809
  Receipt Date: 20170809
  Transmission Date: 20171127
  Serious: Yes (Hospitalization)
  Sender: FDA-Public Use
  Company Number: US-ALLERGAN-1733474US

PATIENT
  Age: 57 Year
  Sex: Male
  Weight: 79.82 kg

DRUGS (2)
  1. METHADONE [Suspect]
     Active Substance: METHADONE HYDROCHLORIDE
     Indication: TUMOUR PAIN
     Dosage: 5 MG, Q8HR
     Route: 048
     Dates: start: 20170616, end: 20170624
  2. MORPHINE SULFATE UNK [Suspect]
     Active Substance: MORPHINE SULFATE
     Indication: TUMOUR PAIN
     Dosage: 15 MG, Q4HR
     Route: 048
     Dates: start: 201704, end: 20170624

REACTIONS (3)
  - Urinary tract infection [Recovered/Resolved]
  - Tumour pain [Recovered/Resolved]
  - Delirium [Recovered/Resolved]

NARRATIVE: CASE EVENT DATE: 20170624
